FAERS Safety Report 9393782 (Version 1)
Quarter: 2013Q3

REPORT INFORMATION
  Report Type: Spontaneous
  Country: US (occurrence: US)
  Receive Date: 20130710
  Receipt Date: 20130710
  Transmission Date: 20140515
  Serious: No
  Sender: FDA-Public Use
  Company Number: US-PFIZER INC-2013201819

PATIENT
  Age: 57 Year
  Sex: Female

DRUGS (13)
  1. LIPITOR [Suspect]
     Dosage: UNK
  2. METFORMIN HCL [Suspect]
     Dosage: UNK
  3. ZETIA [Suspect]
     Dosage: UNK
  4. FISH OIL [Suspect]
     Dosage: UNK
  5. DEMEROL [Suspect]
     Dosage: UNK
  6. TRICOR [Suspect]
     Dosage: UNK
  7. CODEINE [Suspect]
     Dosage: UNK
  8. BETADINE [Suspect]
     Dosage: UNK
  9. WELLBUTRIN [Suspect]
     Dosage: UNK
  10. ZOCOR [Suspect]
     Dosage: UNK
  11. CRESTOR [Suspect]
     Dosage: UNK
  12. FENOFIBRATE [Suspect]
     Dosage: UNK
  13. LOVAZA [Suspect]
     Dosage: UNK

REACTIONS (1)
  - Drug hypersensitivity [Unknown]
